FAERS Safety Report 4754344-4 (Version None)
Quarter: 2005Q3

REPORT INFORMATION
  Report Type: 
  Country: None (occurrence: None)
  Receive Date: 20050825
  Receipt Date: 20050817
  Transmission Date: 20060218
  Serious: Yes (Other)
  Sender: FDA-Public Use
  Company Number: 2005116898

PATIENT
  Sex: Female

DRUGS (2)
  1. LIPITOR [Suspect]
     Indication: ILL-DEFINED DISORDER
     Dates: start: 19970101
  2. AROMASIN [Suspect]
     Indication: ILL-DEFINED DISORDER
     Dates: start: 20050601, end: 20050601

REACTIONS (2)
  - BREAST MASS [None]
  - DIARRHOEA [None]
